FAERS Safety Report 18881847 (Version 2)
Quarter: 2021Q1

REPORT INFORMATION
  Report Type: Report from Study
  Country: IN (occurrence: IN)
  Receive Date: 20210211
  Receipt Date: 20210213
  Transmission Date: 20210420
  Serious: Yes (Hospitalization)
  Sender: FDA-Public Use
  Company Number: IN-EISAI MEDICAL RESEARCH-EC-2021-087791

PATIENT
  Age: 62 Year
  Sex: Male

DRUGS (1)
  1. LENVIMA [Suspect]
     Active Substance: LENVATINIB
     Indication: HEPATOCELLULAR CARCINOMA
     Route: 048
     Dates: start: 20190113

REACTIONS (2)
  - Vomiting [Unknown]
  - Asthenia [Unknown]

NARRATIVE: CASE EVENT DATE: 20201229
